FAERS Safety Report 22220405 (Version 1)
Quarter: 2023Q2

REPORT INFORMATION
  Report Type: Spontaneous
  Country: US (occurrence: US)
  Receive Date: 20230417
  Receipt Date: 20230417
  Transmission Date: 20230722
  Serious: No
  Sender: FDA-Public Use
  Company Number: US-AMGEN-USASP2023063926

PATIENT
  Sex: Male

DRUGS (3)
  1. LUMAKRAS [Suspect]
     Active Substance: SOTORASIB
     Indication: Lung carcinoma cell type unspecified stage 0
     Dosage: 120 MILLIGRAM, QD
     Route: 065
  2. ATORVASTATIN [Concomitant]
     Active Substance: ATORVASTATIN
     Dosage: 80 MILLIGRAM
  3. XARELTO [Concomitant]
     Active Substance: RIVAROXABAN
     Dosage: 10 MILLIGRAM

REACTIONS (1)
  - Product dose omission issue [Unknown]
